FAERS Safety Report 8213055-3 (Version None)
Quarter: 2012Q1

REPORT INFORMATION
  Report Type: 
  Country: None (occurrence: None)
  Receive Date: 20120315
  Receipt Date: 20120307
  Transmission Date: 20120608
  Serious: Yes (Hospitalization)
  Sender: FDA-Public Use
  Company Number: FR-VERTEX PHARMACEUTICALS INC.-000000000000000311

PATIENT
  Sex: Female

DRUGS (3)
  1. RIBAVIRINE [Concomitant]
     Indication: HEPATITIS C
     Dosage: DOSAGE FORM: UNSPECIFIED
     Route: 048
     Dates: start: 20111101, end: 20120217
  2. PEGASYS [Concomitant]
     Indication: HEPATITIS C
     Dosage: DOSAGE FORM: UNSPECIFIED
     Route: 058
     Dates: start: 20111101, end: 20120217
  3. INCIVO (TELAPREVIR) [Suspect]
     Indication: HEPATITIS C
     Dosage: DOSAGE FORM: TABLET
     Route: 048
     Dates: start: 20111101, end: 20120210

REACTIONS (11)
  - TOXIC SKIN ERUPTION [None]
  - EOSINOPHILIA [None]
  - BLOOD CREATINE PHOSPHOKINASE INCREASED [None]
  - PANCYTOPENIA [None]
  - PRURITUS [None]
  - ORAL DISORDER [None]
  - BLOOD LACTATE DEHYDROGENASE INCREASED [None]
  - BONE MARROW FAILURE [None]
  - DYSPHAGIA [None]
  - SKIN EXFOLIATION [None]
  - NEUTROPHILIA [None]
